FAERS Safety Report 13556849 (Version 1)
Quarter: 2017Q2

REPORT INFORMATION
  Report Type: Report from Study
  Country: US (occurrence: US)
  Receive Date: 20170517
  Receipt Date: 20170517
  Transmission Date: 20170830
  Serious: No
  Sender: FDA-Public Use
  Company Number: US-ACADIA PHARMACEUTICALS INC.-ACA-2017-002569

PATIENT
  Sex: Male

DRUGS (1)
  1. NUPLAZID [Suspect]
     Active Substance: PIMAVANSERIN TARTRATE
     Indication: NIGHTMARE
     Dosage: UNK
     Route: 065
     Dates: start: 20170303

REACTIONS (5)
  - Off label use [Unknown]
  - Nightmare [Not Recovered/Not Resolved]
  - Insomnia [Unknown]
  - Abnormal sleep-related event [Unknown]
  - Joint injury [Unknown]

NARRATIVE: CASE EVENT DATE: 201703
